FAERS Safety Report 14600936 (Version 2)
Quarter: 2018Q2

REPORT INFORMATION
  Report Type: Spontaneous
  Country: US (occurrence: DE)
  Receive Date: 20180305
  Receipt Date: 20180403
  Transmission Date: 20180711
  Serious: Yes (Death, Hospitalization, Other)
  Sender: FDA-Public Use
  Company Number: US-SUNOVION-2018SUN000836

PATIENT

DRUGS (3)
  1. INDACATEROL AND GLYCOPYRROLATE [Suspect]
     Active Substance: GLYCOPYRROLATE\INDACATEROL MALEATE
     Indication: CHRONIC OBSTRUCTIVE PULMONARY DISEASE
     Dosage: 1 DF (50/110 UG), QD (REGIMEN #1)
     Route: 055
     Dates: start: 20180103, end: 20180110
  2. ATROVENT [Concomitant]
     Active Substance: IPRATROPIUM BROMIDE
  3. SULTANOL [Concomitant]
     Active Substance: ALBUTEROL SULFATE

REACTIONS (7)
  - Sudden death [Fatal]
  - Hypokalaemia [Unknown]
  - Cardiac arrest [Fatal]
  - Choking [Fatal]
  - Bronchospasm [Fatal]
  - C-reactive protein increased [Unknown]
  - Drug ineffective [Unknown]

NARRATIVE: CASE EVENT DATE: 20180103
